FAERS Safety Report 17193364 (Version 1)
Quarter: 2019Q4

REPORT INFORMATION
  Report Type: Report from Study
  Country: US (occurrence: US)
  Receive Date: 20191223
  Receipt Date: 20191223
  Transmission Date: 20200122
  Serious: Yes (Hospitalization)
  Sender: FDA-Public Use
  Company Number: US-JNJFOC-20191228431

PATIENT
  Age: 66 Year
  Sex: Female

DRUGS (6)
  1. SPRAVATO [Suspect]
     Active Substance: ESKETAMINE
     Indication: PRODUCT USED FOR UNKNOWN INDICATION
  2. BUSPIRONE [Concomitant]
     Active Substance: BUSPIRONE HYDROCHLORIDE
  3. LITHIUM. [Concomitant]
     Active Substance: LITHIUM
  4. DULOXETINE. [Concomitant]
     Active Substance: DULOXETINE
  5. TRAZODONE [Concomitant]
     Active Substance: TRAZODONE HYDROCHLORIDE
  6. CLONAZEPAM. [Concomitant]
     Active Substance: CLONAZEPAM

REACTIONS (3)
  - Sedation [Recovered/Resolved]
  - Cerebrovascular accident [Unknown]
  - Dissociation [Recovered/Resolved]

NARRATIVE: CASE EVENT DATE: 20191212
